FAERS Safety Report 4387951-1 (Version None)
Quarter: 2004Q2

REPORT INFORMATION
  Report Type: 
  Country: None (occurrence: None)
  Receive Date: 20040607
  Receipt Date: 20040121
  Transmission Date: 20050107
  Serious: Yes (Other)
  Sender: FDA-Public Use
  Company Number: 356775

PATIENT
  Age: 13 Year
  Sex: Male

DRUGS (1)
  1. ACCUTANE [Suspect]
     Dosage: ORAL
     Route: 048
     Dates: start: 20030115, end: 20030515

REACTIONS (3)
  - BODY HEIGHT BELOW NORMAL [None]
  - EPIPHYSES PREMATURE FUSION [None]
  - GROWTH RETARDATION [None]
